FAERS Safety Report 18461849 (Version 1)
Quarter: 2020Q4

REPORT INFORMATION
  Report Type: Spontaneous
  Country: US (occurrence: US)
  Receive Date: 20201103
  Receipt Date: 20201103
  Transmission Date: 20210114
  Serious: No
  Sender: FDA-Public Use
  Company Number: None

PATIENT
  Age: 32 Year
  Sex: Male

DRUGS (1)
  1. METHYLPHENIDATE. [Suspect]
     Active Substance: METHYLPHENIDATE

REACTIONS (5)
  - Product substitution issue [None]
  - Depression [None]
  - Drug ineffective [None]
  - Therapeutic response changed [None]
  - Irritability [None]

NARRATIVE: CASE EVENT DATE: 20201027
